FAERS Safety Report 6003962-4 (Version None)
Quarter: 2008Q4

REPORT INFORMATION
  Report Type: 
  Country: None (occurrence: None)
  Receive Date: 20081212
  Receipt Date: 20081212
  Transmission Date: 20090506
  Serious: No
  Sender: FDA-Public Use
  Company Number: None

PATIENT
  Age: 53 Year
  Sex: Male
  Weight: 97.5234 kg

DRUGS (1)
  1. CEFPROZIL [Suspect]
     Indication: SINUSITIS
     Dosage: 500 MG 2 TIMES A DAY
     Dates: start: 20081209, end: 20081210

REACTIONS (2)
  - DYSGEUSIA [None]
  - POLLAKIURIA [None]
